FAERS Safety Report 5116272-4 (Version None)
Quarter: 2006Q3

REPORT INFORMATION
  Report Type: 
  Country: None (occurrence: None)
  Receive Date: 20060925
  Receipt Date: 20060909
  Transmission Date: 20061208
  Serious: Yes (Hospitalization)
  Sender: FDA-Public Use
  Company Number: 2006PV020937

PATIENT
  Age: 58 Year
  Sex: Female
  Weight: 100.6985 kg

DRUGS (20)
  1. BYETTA [Suspect]
     Indication: DIABETES MELLITUS NON-INSULIN-DEPENDENT
     Dosage: 10 MCG; BID; SC;  5 MCG; BID; SC
     Route: 058
     Dates: start: 20060701, end: 20060801
  2. BYETTA [Suspect]
     Indication: DIABETES MELLITUS NON-INSULIN-DEPENDENT
     Dosage: 10 MCG; BID; SC;  5 MCG; BID; SC
     Route: 058
     Dates: start: 20060801, end: 20060909
  3. METFORMIN HCL [Concomitant]
  4. INSULIN: NOVOLOG 70/30 [Concomitant]
  5. CHROMIUM [Concomitant]
  6. LYRICA [Concomitant]
  7. QUININE SULFATE [Concomitant]
  8. NEXIUM [Concomitant]
  9. VESICARE [Concomitant]
  10. QUINAPRIL [Concomitant]
  11. PLAVIX [Concomitant]
  12. CRESTOR [Concomitant]
  13. LEVOTHYROXINE SODIUM [Concomitant]
  14. CALCIUM GLUCONATE [Concomitant]
  15. VITAMINS [Concomitant]
  16. VITAMIN E [Concomitant]
  17. VITAMIN B6 [Concomitant]
  18. VITAMIN B-12 [Concomitant]
  19. GLUCOSAMINE [Concomitant]
  20. CHONDROITIN [Concomitant]

REACTIONS (10)
  - BALANCE DISORDER [None]
  - BLOOD GLUCOSE DECREASED [None]
  - CONFUSIONAL STATE [None]
  - FEELING ABNORMAL [None]
  - FEELING COLD [None]
  - HUNGER [None]
  - HYPERHIDROSIS [None]
  - INCREASED APPETITE [None]
  - LOCALISED INFECTION [None]
  - NERVOUSNESS [None]
